FAERS Safety Report 18594057 (Version 7)
Quarter: 2021Q1

REPORT INFORMATION
  Report Type: Spontaneous
  Country: GB (occurrence: GB)
  Receive Date: 20201209
  Receipt Date: 20210329
  Transmission Date: 20210419
  Serious: Yes (Other)
  Sender: FDA-Public Use
  Company Number: NVSC2020GB319137

PATIENT
  Age: 64 Year
  Sex: Female
  Weight: 58.35 kg

DRUGS (16)
  1. SODIUM CHLORIDE. [Suspect]
     Active Substance: SODIUM CHLORIDE
     Indication: HYPONATRAEMIA
     Dosage: UNK UNK, QMO (SOLUTION FOR INFUSION)
     Route: 042
     Dates: start: 20201028
  2. PENTAMIDINE ISETIONATE [Suspect]
     Active Substance: PENTAMIDINE ISETHIONATE
     Indication: ANTIFUNGAL PROPHYLAXIS
     Dosage: 240 MG, QMO
     Route: 065
     Dates: start: 20201028
  3. SODIUM CHLORIDE. [Suspect]
     Active Substance: SODIUM CHLORIDE
     Dosage: UNK UNK, QMO
     Route: 042
     Dates: start: 20201028
  4. WATER FOR INJECTIONS [Suspect]
     Active Substance: WATER
     Indication: MEDICATION DILUTION
     Dosage: 1 UNK, QMO
     Route: 065
  5. WATER FOR INJECTIONS [Suspect]
     Active Substance: WATER
     Dosage: 1 UNK, QMO
     Route: 065
     Dates: start: 20201028
  6. FILGRASTIM [Suspect]
     Active Substance: FILGRASTIM
     Indication: NEUTROPENIA
     Dosage: 60 IU, QW
     Route: 058
     Dates: start: 20201020
  7. FILGRASTIM [Suspect]
     Active Substance: FILGRASTIM
     Dosage: UNK
     Route: 065
  8. PENTAMIDINE ISETIONATE [Suspect]
     Active Substance: PENTAMIDINE ISETHIONATE
     Indication: NEUTROPENIA
     Dosage: 240 MG, QMO
     Route: 065
     Dates: start: 20201028
  9. PENTAMIDINE [Suspect]
     Active Substance: PENTAMIDINE
     Indication: ANTIFUNGAL PROPHYLAXIS
     Dosage: UNK
     Route: 065
  10. WATER FOR INJECTIONS [Suspect]
     Active Substance: WATER
     Dosage: 1 UNK (QM)
     Route: 065
     Dates: start: 20201028
  11. VALGANCICLOVIR. [Suspect]
     Active Substance: VALGANCICLOVIR
     Indication: CYTOMEGALOVIRUS CHORIORETINITIS
     Dosage: 3600 MG, QD
     Route: 048
     Dates: start: 20200916
  12. PENTAMIDINE [Suspect]
     Active Substance: PENTAMIDINE
     Indication: PROPHYLAXIS
     Dosage: 1 DF, QMO (SOLUTION FOR INJECTION)
     Route: 065
     Dates: start: 20201028
  13. TOLVAPTAN [Suspect]
     Active Substance: TOLVAPTAN
     Indication: HYPONATRAEMIA
     Dosage: 75 MG, QD
     Route: 048
     Dates: start: 20200218
  14. PENTAMIDINE [Suspect]
     Active Substance: PENTAMIDINE
     Indication: NEUTROPENIA
     Dosage: UNK
     Route: 065
  15. SODIUM CHLORIDE. [Suspect]
     Active Substance: SODIUM CHLORIDE
     Indication: MEDICATION DILUTION
     Dosage: UNK UNK, QMO (0.9 PERCENT)
     Route: 065
  16. SODIUM CHLORIDE. [Suspect]
     Active Substance: SODIUM CHLORIDE
     Dosage: UNK UNK, QMO
     Route: 042

REACTIONS (4)
  - Pruritus [Recovered/Resolved]
  - Off label use [Unknown]
  - Infusion site erythema [Recovered/Resolved]
  - Infusion site swelling [Recovered/Resolved]

NARRATIVE: CASE EVENT DATE: 20201028
